APPROVED DRUG PRODUCT: LIDOCAINE
Active Ingredient: LIDOCAINE
Strength: 5%
Dosage Form/Route: OINTMENT;TOPICAL
Application: A206498 | Product #001 | TE Code: AT
Applicant: GLENMARK PHARMACEUTICALS LTD
Approved: Sep 9, 2016 | RLD: No | RS: No | Type: RX